FAERS Safety Report 25741144 (Version 1)
Quarter: 2025Q3

REPORT INFORMATION
  Report Type: Spontaneous
  Country: US (occurrence: US)
  Receive Date: 20250829
  Receipt Date: 20250829
  Transmission Date: 20251020
  Serious: Yes (Other)
  Sender: MERCK SHARP & DOHME LLC
  Company Number: US-009507513-2321415

PATIENT
  Age: 70 Year
  Sex: Female

DRUGS (9)
  1. KEYTRUDA [Suspect]
     Active Substance: PEMBROLIZUMAB
     Indication: Non-small cell lung cancer
     Dosage: 200 MG EVERY 21 DAYS
     Route: 042
     Dates: start: 20250407
  2. BUPROPION [Concomitant]
     Active Substance: BUPROPION
  3. CALCIUM [Concomitant]
     Active Substance: CALCIUM
  4. LUNESTA [Concomitant]
     Active Substance: ESZOPICLONE
  5. PANTOPRAZOLE [Concomitant]
     Active Substance: PANTOPRAZOLE
  6. CELEBREX [Concomitant]
     Active Substance: CELECOXIB
  7. LOSARTAN [Concomitant]
     Active Substance: LOSARTAN
  8. COREG [Concomitant]
     Active Substance: CARVEDILOL
  9. GABAPENTIN [Concomitant]
     Active Substance: GABAPENTIN

REACTIONS (3)
  - Lymphadenectomy [Unknown]
  - Pulmonary resection [Unknown]
  - Fatigue [Unknown]

NARRATIVE: CASE EVENT DATE: 20250601
